FAERS Safety Report 25895379 (Version 1)
Quarter: 2025Q4

REPORT INFORMATION
  Report Type: Spontaneous
  Country: US (occurrence: US)
  Receive Date: 20251008
  Receipt Date: 20251008
  Transmission Date: 20260119
  Serious: Yes (Other)
  Sender: RANBAXY
  Company Number: US-SUN PHARMACEUTICAL INDUSTRIES INC-2025R1-529947

PATIENT
  Age: 41 Year
  Sex: Female

DRUGS (3)
  1. LITHIUM [Interacting]
     Active Substance: LITHIUM
     Indication: Depression
     Dosage: 300 MILLIGRAM, BID
     Route: 048
  2. LITHIUM [Interacting]
     Active Substance: LITHIUM
     Dosage: 600 MILLIGRAM, BID
     Route: 048
  3. SEMAGLUTIDE [Interacting]
     Active Substance: SEMAGLUTIDE
     Indication: Weight control
     Dosage: 0.25 MG/0.5 ML
     Route: 065

REACTIONS (2)
  - Toxicity to various agents [Recovered/Resolved]
  - Drug interaction [Recovered/Resolved]
